FAERS Safety Report 16259368 (Version 3)
Quarter: 2019Q2

REPORT INFORMATION
  Report Type: Spontaneous
  Country: CZ (occurrence: CZ)
  Receive Date: 20190501
  Receipt Date: 20190521
  Transmission Date: 20190711
  Serious: Yes (Death, Hospitalization, Other)
  Sender: FDA-Public Use
  Company Number: CZ-ACCORD-124418

PATIENT
  Age: 38 Year
  Sex: Female

DRUGS (3)
  1. METHYLPREDNISONE [Suspect]
     Active Substance: METHYLPREDNISOLONE
     Indication: IMMUNOSUPPRESSION
     Dosage: RAISED TO 4MG/KG/DAY FROM 2017 TO 07-APR-2017 AND FURTHER TO 6MG/KG/DAY FROM 18-FEB-2017 TO 2017.
     Route: 042
     Dates: start: 2017, end: 20170407
  2. URSODEOXYCHOLATE SODIUM/URSODEOXYCHOLIC ACID [Suspect]
     Active Substance: URSODIOL
     Indication: IMMUNOSUPPRESSION
  3. MYCOPHENOLIC ACID. [Suspect]
     Active Substance: MYCOPHENOLIC ACID
     Indication: IMMUNOSUPPRESSION
     Dates: start: 20170217, end: 20170404

REACTIONS (7)
  - Mental impairment [Recovering/Resolving]
  - Decreased appetite [Recovering/Resolving]
  - Muscular weakness [Recovering/Resolving]
  - Blood thyroid stimulating hormone decreased [Recovering/Resolving]
  - Thrombocytopenia [Recovering/Resolving]
  - Respiratory tract infection [Unknown]
  - Neutropenia [Recovering/Resolving]

NARRATIVE: CASE EVENT DATE: 20170220
